FAERS Safety Report 8046865-6 (Version None)
Quarter: 2012Q1

REPORT INFORMATION
  Report Type: 
  Country: None (occurrence: None)
  Receive Date: 20120116
  Receipt Date: 20120106
  Transmission Date: 20120608
  Serious: Yes (Hospitalization, Other)
  Sender: FDA-Public Use
  Company Number: US-BAYER-2011-087432

PATIENT
  Age: 34 Year
  Sex: Female
  Weight: 81.179 kg

DRUGS (8)
  1. YASMIN [Suspect]
     Dosage: UNK
     Route: 048
     Dates: start: 20060101, end: 20100101
  2. CLARITHROMYCIN [Concomitant]
     Dosage: 500 MG, UNK
     Route: 048
     Dates: start: 20090128
  3. BENZONATATE [Concomitant]
     Dosage: 200 MG, UNK
     Route: 048
     Dates: start: 20090120
  4. ZANTAC [Concomitant]
  5. DROSPIRENONE AND ETHINYL ESTRADIOL [Suspect]
     Dosage: UNK
     Route: 048
     Dates: start: 20060101, end: 20100101
  6. IBUPROFEN [Concomitant]
  7. PROTONIX [Concomitant]
  8. PROCHLORPERAZINE [Concomitant]

REACTIONS (3)
  - PAIN [None]
  - GALLBLADDER DISORDER [None]
  - CHOLECYSTITIS CHRONIC [None]
